FAERS Safety Report 6019713-3 (Version None)
Quarter: 2008Q4

REPORT INFORMATION
  Report Type: 
  Country: None (occurrence: None)
  Receive Date: 20081224
  Receipt Date: 20081216
  Transmission Date: 20090506
  Serious: Yes (Hospitalization)
  Sender: FDA-Public Use
  Company Number: US-WATSON-2008-07391

PATIENT
  Age: 17 Year
  Sex: Male

DRUGS (2)
  1. METHYLPHENIDATE HYDROCHLORIDE [Suspect]
     Indication: ATTENTION DEFICIT/HYPERACTIVITY DISORDER
     Dosage: 36 MG, DAILY
     Route: 048
  2. METHYLPHENIDATE HYDROCHLORIDE [Suspect]
     Dosage: 18 MG, DAILY
     Route: 048

REACTIONS (2)
  - CARDIAC ARREST [None]
  - ELECTROMECHANICAL DISSOCIATION [None]
